FAERS Safety Report 13399576 (Version 1)
Quarter: 2017Q2

REPORT INFORMATION
  Report Type: Spontaneous
  Country: US (occurrence: US)
  Receive Date: 20170403
  Receipt Date: 20170403
  Transmission Date: 20170830
  Serious: Yes (Disabling)
  Sender: FDA-Public Use
  Company Number: None

PATIENT
  Age: 3 Year
  Sex: Male
  Weight: 27 kg

DRUGS (3)
  1. UNDERSCORE OF HOMEOPATHIC THERAPIST [Concomitant]
  2. MIRALAX [Suspect]
     Active Substance: POLYETHYLENE GLYCOL 3350
     Indication: CONSTIPATION
     Dosage: .5 CAPFUL DAILY ORAL
     Route: 048
     Dates: start: 20120401, end: 20170307
  3. FLINTSTONE VITAMINS [Concomitant]

REACTIONS (4)
  - Autism spectrum disorder [None]
  - Fight in school [None]
  - Oppositional defiant disorder [None]
  - Phobia [None]

NARRATIVE: CASE EVENT DATE: 20120401
